FAERS Safety Report 11400693 (Version 1)
Quarter: 2015Q3

REPORT INFORMATION
  Report Type: Spontaneous
  Country: GB (occurrence: GB)
  Receive Date: 20150820
  Receipt Date: 20150820
  Transmission Date: 20151125
  Serious: Yes (Hospitalization)
  Sender: FDA-Public Use
  Company Number: GB-TEVA-585576ACC

PATIENT
  Age: 70 Year
  Sex: Female

DRUGS (9)
  1. WARFARIN [Concomitant]
     Active Substance: WARFARIN
  2. ATORVASTATIN [Concomitant]
     Active Substance: ATORVASTATIN
  3. VERAPAMIL HYDROCHLORIDE. [Concomitant]
     Active Substance: VERAPAMIL HYDROCHLORIDE
  4. LOSARTAN. [Concomitant]
     Active Substance: LOSARTAN
  5. CARBAMAZEPINE. [Suspect]
     Active Substance: CARBAMAZEPINE
     Dosage: 600 MILLIGRAM DAILY;
     Route: 048
     Dates: start: 20150716, end: 20150725
  6. CARBAMAZEPINE. [Suspect]
     Active Substance: CARBAMAZEPINE
     Indication: TRIGEMINAL NEURALGIA
     Dosage: DOSE RECENTLY INCREASED THE WEEK PRIOR TO ADMISSION
     Route: 048
     Dates: end: 20150716
  7. DIGOXIN. [Concomitant]
     Active Substance: DIGOXIN
  8. CARBOCISTEINE [Concomitant]
     Active Substance: CARBOCYSTEINE
  9. TIOTROPIUM [Concomitant]
     Active Substance: TIOTROPIUM

REACTIONS (3)
  - Balance disorder [Unknown]
  - Orthostatic hypotension [Not Recovered/Not Resolved]
  - Malaise [Unknown]

NARRATIVE: CASE EVENT DATE: 20150722
